FAERS Safety Report 8457143-5 (Version None)
Quarter: 2012Q2

REPORT INFORMATION
  Report Type: 
  Country: None (occurrence: None)
  Receive Date: 20120621
  Receipt Date: 20100511
  Transmission Date: 20120825
  Serious: Yes (Death)
  Sender: FDA-Public Use
  Company Number: PHHY2010IT094219

PATIENT

DRUGS (9)
  1. PREDNISONE TAB [Concomitant]
     Dosage: 8 MG, UNK
  2. PREDNISONE TAB [Concomitant]
     Indication: LIVER TRANSPLANT
     Dosage: 20 MG, UNK
  3. PREDNISONE TAB [Concomitant]
     Dosage: 16 MG, UNK
  4. PREDNISONE TAB [Concomitant]
     Dosage: 12 MG, UNK
  5. SIMULECT [Suspect]
     Indication: LIVER TRANSPLANT
     Dosage: 20 MG, UNK
     Route: 042
  6. METHYLPREDNISOLONE [Concomitant]
     Indication: LIVER TRANSPLANT
     Dosage: 500 MG, UNK
     Route: 042
  7. PREDNISONE TAB [Concomitant]
     Dosage: 4 MG, UNK
  8. NEORAL [Suspect]
     Indication: LIVER TRANSPLANT
     Dosage: 2 MG/KG, UNK
  9. GANCICLOVIR [Concomitant]
     Indication: ANTIVIRAL PROPHYLAXIS
     Dosage: 5 MG/KG, UNK
     Route: 042

REACTIONS (2)
  - ANEURYSM RUPTURED [None]
  - INTRA-ABDOMINAL HAEMORRHAGE [None]
